FAERS Safety Report 15991158 (Version 2)
Quarter: 2019Q1

REPORT INFORMATION
  Report Type: Report from Study
  Country: BR (occurrence: BR)
  Receive Date: 20190221
  Receipt Date: 20190225
  Transmission Date: 20190418
  Serious: Yes (Other)
  Sender: FDA-Public Use
  Company Number: BR-ROCHE-1743802

PATIENT
  Sex: Female
  Weight: 61 kg

DRUGS (6)
  1. DOLAMIN (BRAZIL) [Concomitant]
     Indication: PAIN
     Dosage: 1 TABET WHEN THE PATIENT EXPERIENCES PAIN
     Route: 065
  2. ACTEMRA [Suspect]
     Active Substance: TOCILIZUMAB
     Indication: RHEUMATOID ARTHRITIS
     Route: 042
     Dates: start: 20160326
  3. GABAPENTIN. [Suspect]
     Active Substance: GABAPENTIN
     Indication: PAIN
     Dosage: 1 TABLET AT NIGHT
     Route: 065
  4. LISADOR [Concomitant]
     Active Substance: DIPYRONE\PROMETHAZINE HYDROCHLORIDE
     Indication: PAIN
     Dosage: 30 DROPS IN CASE OF PAIN
     Route: 065
  5. MAREVAN [Concomitant]
     Active Substance: WARFARIN SODIUM
     Indication: THROMBOSIS
     Dosage: 1/2 TABLET IN EVEN DATES AND 1/4 TABLET IN THE ODDS DATES - SHE IS NOT SURE ABOUT THE DOSE
     Route: 065
  6. EUTHYROX [Concomitant]
     Active Substance: LEVOTHYROXINE SODIUM
     Dosage: 1 TABLET IN THE MORNING
     Route: 065

REACTIONS (9)
  - Dry throat [Not Recovered/Not Resolved]
  - Throat irritation [Not Recovered/Not Resolved]
  - Rhinorrhoea [Not Recovered/Not Resolved]
  - Sinusitis [Recovered/Resolved]
  - Nausea [Unknown]
  - Ovarian cancer [Unknown]
  - Drug ineffective [Unknown]
  - Increased upper airway secretion [Not Recovered/Not Resolved]
  - Malaise [Unknown]
